FAERS Safety Report 8993001 (Version 1)
Quarter: 2013Q1

REPORT INFORMATION
  Report Type: Spontaneous
  Country: FR (occurrence: FR)
  Receive Date: 20130102
  Receipt Date: 20130102
  Transmission Date: 20140127
  Serious: Yes (Hospitalization)
  Sender: FDA-Public Use
  Company Number: PHHY2012FR121378

PATIENT
  Age: 10 Year
  Sex: Male
  Weight: 34 kg

DRUGS (1)
  1. TEGRETOL [Suspect]
     Indication: GRAND MAL CONVULSION
     Dosage: 100 MG, BID
     Dates: start: 201211, end: 20121202

REACTIONS (6)
  - Somnolence [Recovering/Resolving]
  - Vomiting [Recovered/Resolved]
  - Rash papular [Recovered/Resolved]
  - Pruritus [Recovering/Resolving]
  - Thrombocytopenia [Unknown]
  - Nausea [Recovered/Resolved]
